FAERS Safety Report 10153488 (Version 2)
Quarter: 2014Q2

REPORT INFORMATION
  Report Type: Spontaneous
  Country: BR (occurrence: BR)
  Receive Date: 20140505
  Receipt Date: 20140505
  Transmission Date: 20141212
  Serious: Yes (Hospitalization, Other)
  Sender: FDA-Public Use
  Company Number: BR-ABBVIE-14P-020-1226575-00

PATIENT
  Sex: Female
  Weight: 62 kg

DRUGS (3)
  1. HUMIRA [Suspect]
     Indication: RHEUMATOID ARTHRITIS
     Route: 058
     Dates: end: 201008
  2. DOMPERIX [Concomitant]
     Indication: GASTRITIS
     Dosage: 1 TAB BEFORE LUNCH, 1 TAB BEFORE DINNER
  3. TEKADIN [Concomitant]
     Indication: GASTRITIS

REACTIONS (9)
  - Nail discolouration [Recovered/Resolved]
  - Pneumonia [Recovered/Resolved]
  - Gingivitis [Recovered/Resolved]
  - Lip discolouration [Recovered/Resolved]
  - Pain [Recovered/Resolved]
  - Hypotension [Recovered/Resolved]
  - Skin discolouration [Recovered/Resolved]
  - Cardiomegaly [Not Recovered/Not Resolved]
  - Tooth fracture [Not Recovered/Not Resolved]
